FAERS Safety Report 18002421 (Version 2)
Quarter: 2020Q3

REPORT INFORMATION
  Report Type: Spontaneous
  Country: US (occurrence: US)
  Receive Date: 20200709
  Receipt Date: 20200713
  Transmission Date: 20201103
  Serious: No
  Sender: FDA-Public Use
  Company Number: US-BAYER-2020-133094

PATIENT
  Age: 7 Decade
  Sex: Female

DRUGS (1)
  1. CLIMARA PRO [Suspect]
     Active Substance: ESTRADIOL\LEVONORGESTREL
     Dosage: UNK
     Route: 062
     Dates: start: 2020

REACTIONS (3)
  - Wrong technique in device usage process [None]
  - Device defective [None]
  - Product adhesion issue [None]

NARRATIVE: CASE EVENT DATE: 2020
